FAERS Safety Report 6278390-7 (Version None)
Quarter: 2009Q3

REPORT INFORMATION
  Report Type: 
  Country: None (occurrence: None)
  Receive Date: 20090720
  Receipt Date: 20090720
  Transmission Date: 20100115
  Serious: No
  Sender: FDA-Public Use
  Company Number: None

PATIENT
  Sex: Female
  Weight: 81.6475 kg

DRUGS (1)
  1. DIOVAN [Suspect]
     Indication: BLOOD PRESSURE
     Dosage: 1 A DAY W/BLOOD PRESSURE MED. APP, 2 WEEKS
     Dates: start: 20090612, end: 20090629

REACTIONS (4)
  - DYSPNOEA [None]
  - RASH ERYTHEMATOUS [None]
  - RASH PRURITIC [None]
  - WHEEZING [None]
